FAERS Safety Report 6718269-7 (Version None)
Quarter: 2010Q2

REPORT INFORMATION
  Report Type: 
  Country: None (occurrence: None)
  Receive Date: 20100510
  Receipt Date: 20100427
  Transmission Date: 20101027
  Serious: Yes (Death, Disabling)
  Sender: FDA-Public Use
  Company Number: GB-GENZYME-CLOF-1000939

PATIENT
  Sex: Male

DRUGS (4)
  1. EVOLTRA [Suspect]
     Indication: ACUTE MYELOID LEUKAEMIA
     Dosage: UNK
     Dates: start: 20080715
  2. EVOLTRA [Suspect]
     Dosage: UNK
     Route: 042
     Dates: end: 20080812
  3. DAUNORUBICIN HCL [Suspect]
     Indication: ACUTE MYELOID LEUKAEMIA
     Dosage: UNK
     Dates: start: 20080715
  4. DAUNORUBICIN HCL [Suspect]
     Dosage: UNK
     Route: 042
     Dates: end: 20080812

REACTIONS (2)
  - LEUKAEMIA RECURRENT [None]
  - THROMBOCYTOPENIA [None]
